FAERS Safety Report 11887619 (Version 2)
Quarter: 2016Q1

REPORT INFORMATION
  Report Type: Report from Study
  Country: US (occurrence: US)
  Receive Date: 20160105
  Receipt Date: 20160215
  Transmission Date: 20160526
  Serious: Yes (Death, Hospitalization)
  Sender: FDA-Public Use
  Company Number: PHEH2015US027394

PATIENT
  Age: 5 Year
  Sex: Male
  Weight: 19.1 kg

DRUGS (1)
  1. GLEEVEC [Suspect]
     Active Substance: IMATINIB MESYLATE
     Indication: PRODUCT USED FOR UNKNOWN INDICATION
     Dosage: UNK, QD
     Route: 048
     Dates: start: 20150624, end: 20160118

REACTIONS (4)
  - Neoplasm progression [Fatal]
  - Cerebrospinal fluid leakage [Recovered/Resolved]
  - Cerebrospinal fluid leakage [Not Recovered/Not Resolved]
  - Brain herniation [Fatal]

NARRATIVE: CASE EVENT DATE: 20151228
